FAERS Safety Report 9993259 (Version 4)
Quarter: 2014Q2

REPORT INFORMATION
  Report Type: Spontaneous
  Country: GB (occurrence: GB)
  Receive Date: 20140310
  Receipt Date: 20140523
  Transmission Date: 20141212
  Serious: Yes (Other)
  Sender: FDA-Public Use
  Company Number: GB-PFIZER INC-2014061606

PATIENT
  Age: 65 Year
  Sex: Male
  Weight: 112 kg

DRUGS (9)
  1. ATORVASTATIN [Suspect]
     Indication: BLOOD CHOLESTEROL INCREASED
     Dosage: UNK
     Route: 048
     Dates: start: 1998, end: 2010
  2. CRESTOR [Suspect]
     Indication: BLOOD CHOLESTEROL INCREASED
     Dosage: 5 MG, UNK
     Route: 048
  3. ASPIRIN [Concomitant]
     Dosage: UNK
  4. BENDROFLUMETHIAZIDE [Concomitant]
     Dosage: UNK
  5. LISINOPRIL [Concomitant]
     Dosage: UNK
  6. OMACOR [Concomitant]
     Dosage: UNK
  7. VITAMIN B SUBSTANCES [Concomitant]
     Dosage: UNK
  8. VITAMIN C [Concomitant]
     Dosage: UNK
  9. DOXAZOSIN [Concomitant]
     Dosage: UNK

REACTIONS (1)
  - Small fibre neuropathy [Not Recovered/Not Resolved]
